FAERS Safety Report 9551869 (Version 2)
Quarter: 2013Q4

REPORT INFORMATION
  Report Type: Spontaneous
  Country: US (occurrence: US)
  Receive Date: 20130925
  Receipt Date: 20131017
  Transmission Date: 20140711
  Serious: Yes (Hospitalization)
  Sender: FDA-Public Use
  Company Number: US-JNJFOC-20130911629

PATIENT
  Age: 82 Year
  Sex: Female
  Weight: 58.97 kg

DRUGS (2)
  1. XARELTO [Suspect]
     Indication: CEREBROVASCULAR ACCIDENT
     Dosage: FOR TWO TO THREE WEEKS
     Route: 048
     Dates: start: 201308
  2. ACETYLSALICYLIC ACID [Concomitant]
     Route: 065

REACTIONS (1)
  - Deep vein thrombosis [Recovering/Resolving]
